FAERS Safety Report 5573486-7 (Version None)
Quarter: 2007Q4

REPORT INFORMATION
  Report Type: 
  Country: None (occurrence: None)
  Receive Date: 20071226
  Receipt Date: 20071213
  Transmission Date: 20080405
  Serious: Yes (Death, Congenital Anomaly)
  Sender: FDA-Public Use
  Company Number: US-JNJFOC-20071204263

PATIENT

DRUGS (1)
  1. REMICADE [Suspect]
     Indication: TRANSMISSION OF DRUG VIA SEMEN

REACTIONS (2)
  - DEATH [None]
  - TRISOMY 21 [None]
